FAERS Safety Report 5517781-6 (Version None)
Quarter: 2007Q4

REPORT INFORMATION
  Report Type: 
  Country: None (occurrence: None)
  Receive Date: 20071114
  Receipt Date: 20071011
  Transmission Date: 20080405
  Serious: Yes (Other)
  Sender: FDA-Public Use
  Company Number: NO-MERCK-0710NOR00005

PATIENT
  Age: 72 Year
  Sex: Female

DRUGS (5)
  1. ZOCOR [Suspect]
     Indication: TYPE IIA HYPERLIPIDAEMIA
     Route: 048
  2. SOTALOL HYDROCHLORIDE [Concomitant]
     Route: 065
  3. DILTIAZEM HYDROCHLORIDE [Suspect]
     Route: 065
  4. WARFARIN [Concomitant]
     Route: 065
  5. ATORVASTATIN CALCIUM [Concomitant]
     Indication: TYPE IIA HYPERLIPIDAEMIA
     Route: 048

REACTIONS (4)
  - ASTHENIA [None]
  - DRUG INTERACTION [None]
  - DYSPNOEA [None]
  - MUSCULAR WEAKNESS [None]
